FAERS Safety Report 6396737-8 (Version None)
Quarter: 2009Q4

REPORT INFORMATION
  Report Type: 
  Country: None (occurrence: None)
  Receive Date: 20091012
  Receipt Date: 20090727
  Transmission Date: 20100525
  Serious: No
  Sender: FDA-Public Use
  Company Number: US-ASTRAZENECA-2009UW11941

PATIENT
  Sex: Male

DRUGS (2)
  1. SYMBICORT [Suspect]
     Indication: ASTHMA
     Route: 055
  2. ALBUTEROL [Concomitant]

REACTIONS (3)
  - DRUG INEFFECTIVE [None]
  - DYSPNOEA [None]
  - WHEEZING [None]
